FAERS Safety Report 21967582 (Version 2)
Quarter: 2023Q2

REPORT INFORMATION
  Report Type: Report from Study
  Country: KW (occurrence: KW)
  Receive Date: 20230208
  Receipt Date: 20230405
  Transmission Date: 20230722
  Serious: Yes (Hospitalization, Other)
  Sender: FDA-Public Use
  Company Number: KW-002147023-NVSC2023KW026127

PATIENT
  Age: 72 Year
  Sex: Female

DRUGS (1)
  1. KISQALI [Suspect]
     Active Substance: RIBOCICLIB
     Indication: Breast cancer metastatic
     Dosage: 600 MG, QD
     Route: 048
     Dates: start: 20221121, end: 202303

REACTIONS (4)
  - Oxygen saturation decreased [Recovering/Resolving]
  - Pleural effusion [Recovering/Resolving]
  - Cardiac disorder [Recovering/Resolving]
  - Breast cancer [Not Recovered/Not Resolved]

NARRATIVE: CASE EVENT DATE: 20230101
